FAERS Safety Report 12919541 (Version 2)
Quarter: 2016Q4

REPORT INFORMATION
  Report Type: Spontaneous
  Country: BR (occurrence: BR)
  Receive Date: 20161108
  Receipt Date: 20161129
  Transmission Date: 20170207
  Serious: Yes (Hospitalization, Other)
  Sender: FDA-Public Use
  Company Number: BR-ASTRAZENECA-2016SF15348

PATIENT
  Age: 50 Year
  Sex: Male
  Weight: 103 kg

DRUGS (5)
  1. PROPRANOLOL HYDROCHLORIDE. [Suspect]
     Active Substance: PROPRANOLOL HYDROCHLORIDE
     Indication: HYPERTENSION
     Dosage: 50 MG, DAILY (GENERIC)
     Route: 048
     Dates: start: 2008
  2. CRESTOR [Suspect]
     Active Substance: ROSUVASTATIN CALCIUM
     Indication: HEPATIC STEATOSIS
     Dosage: 5.0MG UNKNOWN
     Route: 048
     Dates: start: 2009, end: 20160929
  3. CRESTOR [Suspect]
     Active Substance: ROSUVASTATIN CALCIUM
     Indication: BLOOD CHOLESTEROL INCREASED
     Dosage: 5.0MG UNKNOWN
     Route: 048
     Dates: start: 2009, end: 20160929
  4. CRESTOR [Suspect]
     Active Substance: ROSUVASTATIN CALCIUM
     Indication: BLOOD CHOLESTEROL INCREASED
     Dosage: UNKNOWN
     Route: 048
  5. CRESTOR [Suspect]
     Active Substance: ROSUVASTATIN CALCIUM
     Indication: HEPATIC STEATOSIS
     Dosage: UNKNOWN
     Route: 048

REACTIONS (5)
  - Fat embolism [Recovering/Resolving]
  - Arteriosclerosis [Unknown]
  - Blood cholesterol increased [Recovering/Resolving]
  - Fatigue [Recovered/Resolved]
  - Hypertension [Recovered/Resolved]

NARRATIVE: CASE EVENT DATE: 2009
